FAERS Safety Report 7489142-4 (Version None)
Quarter: 2011Q2

REPORT INFORMATION
  Report Type: 
  Country: None (occurrence: None)
  Receive Date: 20110518
  Receipt Date: 20110506
  Transmission Date: 20111010
  Serious: Yes (Hospitalization, Other)
  Sender: FDA-Public Use
  Company Number: US-BAYER-201038677NA

PATIENT
  Age: 17 Year
  Sex: Female
  Weight: 52.154 kg

DRUGS (6)
  1. MEDROL [Concomitant]
     Indication: BACK PAIN
     Dosage: UNK
     Route: 048
     Dates: start: 20070901
  2. IBUPROFEN [Concomitant]
     Indication: BACK PAIN
     Dosage: 600 MG, PRN
     Route: 048
     Dates: start: 20070914
  3. IBUPROFEN [Concomitant]
     Indication: MUSCLE STRAIN
  4. YAZ [Suspect]
     Indication: CONTRACEPTION
     Dosage: UNK UNK, UNK
     Route: 048
     Dates: start: 20060901, end: 20070901
  5. YAZ [Suspect]
     Indication: ACNE
  6. MEDROL [Concomitant]
     Indication: MUSCLE STRAIN

REACTIONS (1)
  - DEEP VEIN THROMBOSIS [None]
